FAERS Safety Report 23980449 (Version 1)
Quarter: 2024Q2

REPORT INFORMATION
  Report Type: Spontaneous
  Country: US (occurrence: US)
  Receive Date: 20240617
  Receipt Date: 20240617
  Transmission Date: 20240716
  Serious: Yes (Other)
  Sender: FDA-Public Use
  Company Number: US-CIPLA LTD.-2024US05967

PATIENT

DRUGS (7)
  1. LISINOPRIL [Suspect]
     Active Substance: LISINOPRIL
     Indication: Blood pressure management
     Dosage: 40 MILLIGRAM, QD (DAILY)
     Route: 065
     Dates: start: 2024
  2. LISINOPRIL [Suspect]
     Active Substance: LISINOPRIL
     Dosage: 20 MILLIGRAM, QD (DAILY)
     Route: 065
     Dates: start: 20240301
  3. LISINOPRIL [Suspect]
     Active Substance: LISINOPRIL
     Dosage: 10 MILLIGRAM, QD (DAILY)
     Route: 065
     Dates: start: 20240306
  4. JYNARQUE [Suspect]
     Active Substance: TOLVAPTAN
     Indication: Congenital cystic kidney disease
     Dosage: UNK
     Route: 065
     Dates: start: 20230303
  5. JYNARQUE [Suspect]
     Active Substance: TOLVAPTAN
     Dosage: BID (45 MG QAM AND 15 MG (8 H LATER DAILY))
     Route: 065
     Dates: start: 20230315
  6. JYNARQUE [Suspect]
     Active Substance: TOLVAPTAN
     Dosage: UNK, BID (60 MG AND 30 MG)
     Route: 065
     Dates: start: 20240116
  7. JYNARQUE [Suspect]
     Active Substance: TOLVAPTAN
     Dosage: UNK, BID (45 MG AND 15 MG)
     Route: 065
     Dates: start: 20240301

REACTIONS (4)
  - Dehydration [Recovered/Resolved]
  - Blood creatinine increased [Recovered/Resolved]
  - Hyperkalaemia [Recovered/Resolved]
  - Hypotension [Recovered/Resolved]

NARRATIVE: CASE EVENT DATE: 20240101
